FAERS Safety Report 18062647 (Version 2)
Quarter: 2020Q3

REPORT INFORMATION
  Report Type: Spontaneous
  Country: GB (occurrence: GB)
  Receive Date: 20200723
  Receipt Date: 20200828
  Transmission Date: 20201103
  Serious: Yes (Disabling)
  Sender: FDA-Public Use
  Company Number: GB-ASCEND THERAPEUTICS US, LLC-2087665

PATIENT
  Age: 51 Year
  Sex: Female

DRUGS (4)
  1. OESTRODOSE (ESTRADIOL) [Suspect]
     Active Substance: ESTRADIOL
     Route: 065
     Dates: start: 202005, end: 20200626
  2. UTROGESTAN (MICRONIZED PROGESTERONE), UNKNOWN?INDICATION FOR USE: HRT [Concomitant]
     Route: 065
  3. ESTROGEL [Suspect]
     Active Substance: ESTRADIOL
     Indication: HORMONE REPLACEMENT THERAPY
     Route: 065
     Dates: end: 20200629
  4. ESTROGEL [Suspect]
     Active Substance: ESTRADIOL

REACTIONS (7)
  - Suicidal ideation [Not Recovered/Not Resolved]
  - Lethargy [Unknown]
  - Headache [Recovered/Resolved]
  - Depression [Not Recovered/Not Resolved]
  - Fatigue [Recovering/Resolving]
  - Product substitution issue [Unknown]
  - Therapeutic product ineffective [Not Recovered/Not Resolved]
